FAERS Safety Report 9961831 (Version 1)
Quarter: 2014Q1

REPORT INFORMATION
  Report Type: Report from Study
  Country: US (occurrence: US)
  Receive Date: 20140305
  Receipt Date: 20140305
  Transmission Date: 20141002
  Serious: No
  Sender: FDA-Public Use
  Company Number: US-ABBVIE-13P-163-1113541-00

PATIENT
  Age: 49 Year
  Sex: Female

DRUGS (2)
  1. HUMIRA [Suspect]
     Indication: COLITIS ULCERATIVE
     Dates: start: 20130531
  2. HUMIRA [Suspect]
     Indication: ARTHRITIS ENTEROPATHIC

REACTIONS (5)
  - Wrong technique in drug usage process [Recovering/Resolving]
  - Injection site pain [Recovering/Resolving]
  - Injury associated with device [Recovering/Resolving]
  - Incorrect dose administered [Recovering/Resolving]
  - Incorrect route of drug administration [Recovering/Resolving]
